FAERS Safety Report 20205443 (Version 1)
Quarter: 2021Q4

REPORT INFORMATION
  Report Type: Spontaneous
  Country: CN (occurrence: CN)
  Receive Date: 20211220
  Receipt Date: 20211220
  Transmission Date: 20220304
  Serious: Yes (Hospitalization, Other)
  Sender: FDA-Public Use
  Company Number: CN-JNJFOC-20210802612

PATIENT
  Age: 74 Year
  Sex: Male
  Weight: 67 kg

DRUGS (63)
  1. ZYTIGA [Suspect]
     Active Substance: ABIRATERONE ACETATE
     Indication: Product used for unknown indication
     Route: 048
     Dates: start: 20201124
  2. PREDNISONE [Suspect]
     Active Substance: PREDNISONE
     Indication: Product used for unknown indication
     Dosage: MOST RECENT DOSE 9-DEC-2021
     Route: 048
     Dates: start: 20201124
  3. NIRAPARIB [Suspect]
     Active Substance: NIRAPARIB
     Indication: Product used for unknown indication
     Dosage: MOST RECENT DOSE 12-OCT-2021
     Route: 048
     Dates: start: 20201124
  4. NIRAPARIB [Suspect]
     Active Substance: NIRAPARIB
     Dosage: MOST RECENT DOSE 12-OCT-2021
     Route: 048
     Dates: start: 20201124
  5. IRBESARTAN [Concomitant]
     Active Substance: IRBESARTAN
     Indication: Hypertension
     Route: 048
     Dates: start: 2014
  6. METOPROLOL [Concomitant]
     Active Substance: METOPROLOL
     Indication: Hypertension
     Route: 048
     Dates: start: 2014
  7. METOPROLOL [Concomitant]
     Active Substance: METOPROLOL
     Route: 048
     Dates: start: 20210109
  8. METOPROLOL [Concomitant]
     Active Substance: METOPROLOL
     Route: 048
     Dates: start: 20210119
  9. ATORVASTATIN CALCIUM [Concomitant]
     Active Substance: ATORVASTATIN CALCIUM
     Indication: Hyperlipidaemia
     Route: 048
     Dates: start: 2014
  10. CLOPIDOGREL BISULFATE [Concomitant]
     Active Substance: CLOPIDOGREL BISULFATE
     Indication: Myocardial infarction
     Route: 048
     Dates: start: 2014
  11. CLOPIDOGREL BISULFATE [Concomitant]
     Active Substance: CLOPIDOGREL BISULFATE
     Indication: Arteriosclerosis coronary artery
  12. FLUPENTIXOL\MELITRACEN [Concomitant]
     Active Substance: FLUPENTIXOL\MELITRACEN
     Indication: Anxiety
     Route: 048
     Dates: start: 2018
  13. FLUPENTIXOL\MELITRACEN [Concomitant]
     Active Substance: FLUPENTIXOL\MELITRACEN
     Route: 048
     Dates: start: 20210618
  14. IMRECOXIB [Concomitant]
     Active Substance: IMRECOXIB
     Indication: Bone pain
     Route: 048
     Dates: start: 20201029
  15. IMRECOXIB [Concomitant]
     Active Substance: IMRECOXIB
     Indication: Back pain
     Route: 048
     Dates: start: 20210102
  16. IMRECOXIB [Concomitant]
     Active Substance: IMRECOXIB
     Route: 048
     Dates: start: 20210603
  17. IMRECOXIB [Concomitant]
     Active Substance: IMRECOXIB
     Route: 048
     Dates: start: 20210624
  18. TAMSULOSIN HYDROCHLORIDE [Concomitant]
     Active Substance: TAMSULOSIN HYDROCHLORIDE
     Route: 048
     Dates: start: 202005
  19. GOSERELIN ACETATE [Concomitant]
     Active Substance: GOSERELIN ACETATE
     Route: 058
     Dates: start: 20200605
  20. ALPRAZOLAM [Concomitant]
     Active Substance: ALPRAZOLAM
     Indication: Anxiety
     Route: 048
     Dates: start: 20201121
  21. KETOTIFEN FUMARATE [Concomitant]
     Active Substance: KETOTIFEN FUMARATE
     Indication: Upper respiratory tract infection
     Route: 048
     Dates: start: 20210111
  22. PHENOLPHTHALEIN [Concomitant]
     Active Substance: PHENOLPHTHALEIN
     Indication: Constipation
     Route: 048
     Dates: start: 20210111
  23. CEFTRIAXONE SODIUM [Concomitant]
     Active Substance: CEFTRIAXONE SODIUM
     Indication: Cholecystitis acute
     Route: 042
     Dates: start: 20210105
  24. DIETARY SUPPLEMENT [Concomitant]
     Active Substance: DIETARY SUPPLEMENT
     Indication: Decreased appetite
     Route: 048
     Dates: start: 20210115
  25. DIETARY SUPPLEMENT [Concomitant]
     Active Substance: DIETARY SUPPLEMENT
     Route: 048
     Dates: start: 20210618
  26. BATILOL [Concomitant]
     Active Substance: BATILOL
     Indication: White blood cell count decreased
     Route: 048
     Dates: start: 20210111
  27. CIMETIDINE [Concomitant]
     Active Substance: CIMETIDINE
     Indication: Prophylaxis
     Route: 042
     Dates: start: 20210104
  28. RABEPRAZOLE SODIUM [Concomitant]
     Active Substance: RABEPRAZOLE SODIUM
     Indication: Prophylaxis
     Route: 048
     Dates: start: 20210109
  29. LIGUSTRAZINE PHOSPHATE [Concomitant]
     Active Substance: LIGUSTRAZINE PHOSPHATE
     Indication: Lacunar infarction
     Route: 042
     Dates: start: 20210104
  30. NICOTINIC ACID [Concomitant]
     Active Substance: NIACIN
     Indication: Lacunar infarction
     Route: 042
     Dates: start: 20210109
  31. PROPYL GALLATE [Concomitant]
     Indication: Lacunar infarction
     Route: 042
     Dates: start: 20210112
  32. PROPYL GALLATE [Concomitant]
     Indication: Arteriosclerosis coronary artery
     Route: 051
     Dates: start: 20210618
  33. PAPAVERINE HYDROCHLORIDE [Concomitant]
     Active Substance: PAPAVERINE HYDROCHLORIDE
     Indication: Lacunar infarction
     Route: 042
     Dates: start: 20210115
  34. TRIMETAZIDINE DIHYDROCHLORIDE [Concomitant]
     Active Substance: TRIMETAZIDINE DIHYDROCHLORIDE
     Indication: Arteriosclerosis coronary artery
     Route: 048
     Dates: start: 20210106
  35. TRIMETAZIDINE DIHYDROCHLORIDE [Concomitant]
     Active Substance: TRIMETAZIDINE DIHYDROCHLORIDE
     Indication: Myocardial infarction
     Route: 048
     Dates: start: 20210702
  36. TERAZOSIN HYDROCHLORIDE [Concomitant]
     Active Substance: TERAZOSIN HYDROCHLORIDE
     Indication: Hypertension
     Route: 048
     Dates: start: 20210104
  37. AMLODIPINE BESYLATE [Concomitant]
     Active Substance: AMLODIPINE BESYLATE
     Indication: Hypertension
     Route: 048
     Dates: start: 20210104
  38. GLIMEPIRIDE [Concomitant]
     Active Substance: GLIMEPIRIDE
     Indication: Type 2 diabetes mellitus
     Route: 048
     Dates: start: 20210105
  39. METFORMIN HYDROCHLORIDE [Concomitant]
     Active Substance: METFORMIN HYDROCHLORIDE
     Indication: Type 2 diabetes mellitus
     Route: 048
     Dates: start: 20210105
  40. EUCALYPTOL, LIMONENE AND PINENE [Concomitant]
     Indication: Bronchitis
     Route: 048
     Dates: start: 20210419
  41. BROMHEXINE HYDROCHLORIDE [Concomitant]
     Active Substance: BROMHEXINE HYDROCHLORIDE
     Indication: Bronchitis
     Route: 048
     Dates: start: 20210419
  42. COMPOUND LIQUORICE [Concomitant]
     Indication: Bronchitis
     Route: 048
     Dates: start: 20210419
  43. AMINOPHYLLINE [Concomitant]
     Active Substance: AMINOPHYLLINE
     Indication: Bronchitis
     Route: 042
     Dates: start: 20210419
  44. PENICILLIN G SODIUM [Concomitant]
     Active Substance: PENICILLIN G SODIUM
     Indication: Bronchitis
     Route: 042
     Dates: start: 20210419
  45. PROCATEROL HYDROCHLORIDE [Concomitant]
     Active Substance: PROCATEROL HYDROCHLORIDE
     Indication: Bronchitis
     Route: 048
     Dates: start: 20210426
  46. METOPROLOL SUCCINATE [Concomitant]
     Active Substance: METOPROLOL SUCCINATE
     Indication: Hypertension
     Route: 048
     Dates: start: 20210618
  47. PANTOPRAZOLE [Concomitant]
     Active Substance: PANTOPRAZOLE
     Indication: Gastrointestinal disorder therapy
     Route: 048
     Dates: start: 20210618
  48. VINCAMINE [Concomitant]
     Active Substance: VINCAMINE
     Indication: Lacunar infarction
     Route: 048
     Dates: start: 20210618
  49. NITROGLYCERIN [Concomitant]
     Active Substance: NITROGLYCERIN
     Indication: Arteriosclerosis coronary artery
     Route: 060
     Dates: start: 20210618
  50. LIGUSTRAZINE HYDROCHLORIDE [Concomitant]
     Active Substance: LIGUSTRAZINE HYDROCHLORIDE
     Indication: Lacunar infarction
     Route: 042
     Dates: start: 20210702
  51. VITAMIN C [Concomitant]
     Active Substance: ASCORBIC ACID
     Indication: Decreased appetite
     Route: 042
     Dates: start: 20210702
  52. VITAMIN B6 [Concomitant]
     Active Substance: PYRIDOXINE HYDROCHLORIDE
     Indication: Decreased appetite
     Route: 042
     Dates: start: 20210702
  53. POTASSIUM CHLORIDE [Concomitant]
     Active Substance: POTASSIUM CHLORIDE
     Indication: Hypokalaemia
     Route: 048
     Dates: start: 20210702
  54. CEFUROXIME SODIUM [Concomitant]
     Active Substance: CEFUROXIME SODIUM
     Indication: Upper respiratory tract infection
     Route: 042
     Dates: start: 20210703
  55. POTASSIUM CHLORIDE [Concomitant]
     Active Substance: POTASSIUM CHLORIDE
     Indication: Hypokalaemia
     Route: 042
     Dates: start: 20210705
  56. CALCIUM GLUCONATE [Concomitant]
     Active Substance: CALCIUM GLUCONATE
     Indication: Hypocalcaemia
     Route: 042
     Dates: start: 20210705
  57. SPIRONOLACTONE [Concomitant]
     Active Substance: SPIRONOLACTONE
     Indication: Oedema peripheral
     Route: 048
     Dates: start: 20210705
  58. HYDROCHLOROTHIAZIDE [Concomitant]
     Active Substance: HYDROCHLOROTHIAZIDE
     Indication: Oedema peripheral
     Route: 048
     Dates: start: 20210705
  59. COMPOUND SODIUM LACTATE AND SORBITOL [Concomitant]
     Indication: Fluid replacement
     Route: 042
     Dates: start: 20210702
  60. ALBUMIN HUMAN [Concomitant]
     Active Substance: ALBUMIN HUMAN
     Indication: Hypoproteinaemia
     Route: 042
     Dates: start: 20210703
  61. FUROSEMIDE [Concomitant]
     Active Substance: FUROSEMIDE
     Indication: Oedema peripheral
     Route: 042
     Dates: start: 20210705
  62. TRIPTORELIN ACETATE [Concomitant]
     Active Substance: TRIPTORELIN ACETATE
     Route: 030
     Dates: start: 20201123
  63. ACETAMINOPHEN [Concomitant]
     Active Substance: ACETAMINOPHEN
     Indication: Upper respiratory tract infection
     Route: 048

REACTIONS (19)
  - Anaemia [Not Recovered/Not Resolved]
  - Cholecystitis acute [Not Recovered/Not Resolved]
  - Hypokalaemia [Recovered/Resolved]
  - Leukopenia [Recovering/Resolving]
  - Thrombocytopenia [Not Recovered/Not Resolved]
  - Neutropenia [Recovered/Resolved]
  - Lymphopenia [Not Recovered/Not Resolved]
  - Hypoproteinaemia [Recovered/Resolved]
  - Upper respiratory tract infection [Recovered/Resolved]
  - Constipation [Recovered/Resolved]
  - Decreased appetite [Recovered/Resolved]
  - Oedema peripheral [Recovered/Resolved]
  - Chest discomfort [Recovered/Resolved]
  - Bronchitis [Recovered/Resolved]
  - Back pain [Not Recovered/Not Resolved]
  - Asthenia [Not Recovered/Not Resolved]
  - Hypocalcaemia [Recovered/Resolved]
  - Insomnia [Not Recovered/Not Resolved]
  - Proteinuria [Recovered/Resolved]

NARRATIVE: CASE EVENT DATE: 20201130
